FAERS Safety Report 7309665 (Version 8)
Quarter: 2013Q4

REPORT INFORMATION
  Report Type: Spontaneous
  Country: US (occurrence: US)
  Receive Date: 20100309
  Receipt Date: 20131030
  Transmission Date: 20140711
  Serious: Yes (Hospitalization, Other)
  Sender: FDA-Public Use
  Company Number: US-BAYER-201015564NA

PATIENT
  Age: 22 Year
  Sex: Female

DRUGS (33)
  1. YASMIN [Suspect]
     Indication: CONTRACEPTION
     Route: 048
     Dates: start: 20021210, end: 20031022
  2. YAZ [Suspect]
     Indication: CONTRACEPTION
     Dosage: DISCREPANT DATES
     Route: 048
  3. ESTROSTEP FE [Concomitant]
     Dates: start: 20031229
  4. MEPERIDINE/PROMETHAZINE [Concomitant]
     Dosage: MEPERIDINE 50 MG /PROMETHAZINE 25 MG
     Route: 048
     Dates: start: 20040129
  5. FLEXERIL [Concomitant]
     Dates: start: 20040921
  6. NAPROXEN [Concomitant]
     Dates: start: 20040921
  7. CLARINEX [DESLORATADINE] [Concomitant]
     Dates: start: 20041006
  8. ZITHROMAX [Concomitant]
     Dates: start: 200305
  9. ULTRACET [Concomitant]
     Dates: start: 20030129
  10. CIPRO [Concomitant]
     Dates: start: 20030129
  11. FAMVIR [FAMCICLOVIR] [Concomitant]
     Dates: start: 20030129
  12. NITROFURANT MACRO [Concomitant]
     Dates: start: 20041210
  13. CLINDAMYCIN [Concomitant]
     Dates: start: 20040129
  14. PROPOXYPHENE NAPSYLATE W/ACETAMINOPHENE [Concomitant]
     Dosage: PROPOXYPHENE NAPSYLATE W 100 /ACETAMINOPHENE 650
     Dates: start: 20040310
  15. LEVAQUIN [Concomitant]
     Dates: start: 20031217
  16. BENZONATATE [Concomitant]
     Dates: start: 20031217
  17. SKELAXIN [Concomitant]
     Dates: start: 20030917
  18. PSEUDOVENT DM [Concomitant]
     Dates: start: 20030917
  19. KETOPROFEN [Concomitant]
     Dates: start: 20041224
  20. OVCON [Concomitant]
     Indication: CONTRACEPTION
  21. PROMETRIUM [Concomitant]
     Dosage: 400 MG, UNK
  22. PREMARIN [Concomitant]
     Dosage: 0.125 MG, UNK
  23. TYLENOL [PARACETAMOL] [Concomitant]
  24. IBUPROFEN [Concomitant]
  25. DEMEROL [Concomitant]
     Dosage: 25 MG, UNK
     Route: 042
  26. PHENERGAN [Concomitant]
     Dosage: 12.5 MG, UNK
     Route: 042
  27. RELPAX [Concomitant]
  28. BENTYL [Concomitant]
     Dosage: 20 MG, UNK
     Route: 030
  29. TORADOL [Concomitant]
     Dosage: 60 MG, UNK
     Route: 030
  30. BELLADONNA EXTRACT W/PHENOBARBITONE [Concomitant]
     Dosage: 5 ML, UNK
     Route: 048
  31. LIDOCAINE [Concomitant]
     Dosage: 20 ML, UNK
     Route: 048
  32. PEPCID [Concomitant]
  33. MOTRIN [Concomitant]

REACTIONS (6)
  - Cholecystitis chronic [None]
  - Cholecystitis [Unknown]
  - Pyrexia [None]
  - Malaise [None]
  - Rash [None]
  - Metrorrhagia [Unknown]
